FAERS Safety Report 10523312 (Version 1)
Quarter: 2014Q4

REPORT INFORMATION
  Report Type: Spontaneous
  Country: CH (occurrence: CH)
  Receive Date: 20141016
  Receipt Date: 20141016
  Transmission Date: 20150528
  Serious: Yes (Other)
  Sender: FDA-Public Use
  Company Number: PHHY2014CH132053

PATIENT
  Age: 45 Year
  Sex: Female

DRUGS (1)
  1. LETROZOLE. [Suspect]
     Active Substance: LETROZOLE
     Indication: INVASIVE DUCTAL BREAST CARCINOMA
     Dosage: UNK
     Route: 065
     Dates: start: 20090818, end: 200909

REACTIONS (6)
  - Pneumonitis chemical [Unknown]
  - Malignant neoplasm progression [Unknown]
  - Dermatitis allergic [Unknown]
  - Bronchopneumonia [Unknown]
  - Breast cancer recurrent [Unknown]
  - Lymphadenopathy [Unknown]

NARRATIVE: CASE EVENT DATE: 20130930
